FAERS Safety Report 4444635-9 (Version None)
Quarter: 2004Q3

REPORT INFORMATION
  Report Type: 
  Country: None (occurrence: None)
  Receive Date: 20040902
  Receipt Date: 20040817
  Transmission Date: 20050211
  Serious: No
  Sender: FDA-Public Use
  Company Number: US_0407104340

PATIENT
  Age: 48 Year
  Sex: Male
  Weight: 110 kg

DRUGS (1)
  1. ZYPREXA [Suspect]
     Dates: start: 20020401, end: 20040401

REACTIONS (8)
  - BLOOD UREA DECREASED [None]
  - CARDIAC DISORDER [None]
  - GASTRIC DILATATION [None]
  - HALLUCINATION [None]
  - HYPERSOMNIA [None]
  - INSOMNIA [None]
  - RECTAL HAEMORRHAGE [None]
  - TREATMENT NONCOMPLIANCE [None]
